FAERS Safety Report 17292768 (Version 1)
Quarter: 2020Q1

REPORT INFORMATION
  Report Type: Spontaneous
  Country: US (occurrence: US)
  Receive Date: 20200101
  Receipt Date: 20200101
  Transmission Date: 20200409
  Serious: Yes (Hospitalization)
  Sender: FDA-Public Use
  Company Number: None

PATIENT
  Sex: Male
  Weight: 73.4 kg

DRUGS (5)
  1. ETOPOSIDE. [Suspect]
     Active Substance: ETOPOSIDE
     Dates: start: 20191206
  2. PRECURSOR B- LYMPHOBLASTIC LEUKEMIA [Concomitant]
  3. PEG-L-ASPARAGINASE [Concomitant]
     Active Substance: PEGASPARGASE
  4. METHOTREXATE. [Concomitant]
     Active Substance: METHOTREXATE
  5. CYTARABINE. [Suspect]
     Active Substance: CYTARABINE
     Dates: start: 20190716, end: 20191206

REACTIONS (8)
  - Pyrexia [None]
  - Sputum discoloured [None]
  - Chills [None]
  - Respiratory syncytial virus test positive [None]
  - Chest pain [None]
  - Bacterial infection [None]
  - Cough [None]
  - Upper respiratory tract infection [None]

NARRATIVE: CASE EVENT DATE: 20191209
